FAERS Safety Report 18414066 (Version 3)
Quarter: 2021Q2

REPORT INFORMATION
  Report Type: Report from Study
  Country: US (occurrence: US)
  Receive Date: 20201022
  Receipt Date: 20210429
  Transmission Date: 20210717
  Serious: Yes (Other)
  Sender: FDA-Public Use
  Company Number: US-BRISTOL-MYERS SQUIBB COMPANY-BMS-2020-041306

PATIENT
  Age: 61 Year
  Sex: Female

DRUGS (2)
  1. ABATACEPT [Suspect]
     Active Substance: ABATACEPT
     Indication: OSTEOARTHRITIS
     Dosage: 125 MILLIGRAM, QWK
     Route: 058
     Dates: start: 202012
  2. ABATACEPT [Suspect]
     Active Substance: ABATACEPT
     Indication: RHEUMATOID ARTHRITIS
     Dosage: 125 MILLIGRAM, QWK
     Route: 058
     Dates: start: 20200501

REACTIONS (9)
  - Discharge [Unknown]
  - Skin injury [Not Recovered/Not Resolved]
  - Fall [Not Recovered/Not Resolved]
  - Joint swelling [Unknown]
  - Bacterial infection [Not Recovered/Not Resolved]
  - Pain in extremity [Unknown]
  - Wound infection staphylococcal [Recovered/Resolved]
  - Joint injury [Unknown]
  - Arthralgia [Unknown]

NARRATIVE: CASE EVENT DATE: 20201002
